FAERS Safety Report 7071364-8 (Version None)
Quarter: 2010Q4

REPORT INFORMATION
  Report Type: 
  Country: None (occurrence: None)
  Receive Date: 20101029
  Receipt Date: 20101021
  Transmission Date: 20110411
  Serious: Yes (Life-Threatening)
  Sender: FDA-Public Use
  Company Number: IE-SANOFI-AVENTIS-2010SA061032

PATIENT
  Age: 76 Year
  Sex: Female

DRUGS (9)
  1. MULTAQ [Suspect]
     Indication: ARRHYTHMIA
     Route: 048
     Dates: start: 20100930, end: 20101007
  2. SOTALOL [Concomitant]
     Indication: PRODUCT USED FOR UNKNOWN INDICATION
     Dates: end: 20100901
  3. PRAVASTATIN [Concomitant]
     Route: 048
     Dates: start: 20060325
  4. NU-SEALS ASPIRIN [Concomitant]
     Indication: ANTIPLATELET THERAPY
     Route: 048
     Dates: start: 20060325
  5. GLUCOPHAGE [Concomitant]
     Route: 048
     Dates: start: 20060325
  6. FOSAMAX [Concomitant]
     Indication: BONE DISORDER
     Route: 048
     Dates: start: 20090209
  7. CALCICHEW D3 [Concomitant]
     Indication: BONE DISORDER
     Route: 048
     Dates: start: 20080422
  8. ISTIN [Concomitant]
     Indication: BLOOD PRESSURE DECREASED
     Route: 048
     Dates: start: 20081020
  9. PERINDOPRIL [Concomitant]
     Indication: BLOOD PRESSURE DECREASED
     Route: 048
     Dates: start: 20090425

REACTIONS (5)
  - BURNING SENSATION [None]
  - DRUG INEFFECTIVE [None]
  - DYSPEPSIA [None]
  - TACHYCARDIA [None]
  - TREMOR [None]
